FAERS Safety Report 20311035 (Version 1)
Quarter: 2022Q1

REPORT INFORMATION
  Report Type: Spontaneous
  Country: US (occurrence: None)
  Receive Date: 20220107
  Receipt Date: 20220107
  Transmission Date: 20220424
  Serious: No
  Sender: FDA-Public Use
  Company Number: None

PATIENT
  Sex: Female

DRUGS (17)
  1. AMBRISENTAN [Suspect]
     Active Substance: AMBRISENTAN
     Indication: Pulmonary hypertension
     Dosage: FREQUENCY : DAILY;?
     Route: 048
  2. ATORVASTATIN CALCIUM [Concomitant]
     Active Substance: ATORVASTATIN CALCIUM
  3. PROBIOTIC DAILY [Concomitant]
  4. ADEMPAS [Concomitant]
     Active Substance: RIOCIGUAT
  5. JANUMET [Concomitant]
     Active Substance: METFORMIN HYDROCHLORIDE\SITAGLIPTIN PHOSPHATE
  6. MAGNESIUM [Concomitant]
     Active Substance: MAGNESIUM
  7. IRON [Concomitant]
     Active Substance: IRON
  8. FUROSEMIDE [Concomitant]
     Active Substance: FUROSEMIDE
  9. SPIRONOLACTONE [Concomitant]
     Active Substance: SPIRONOLACTONE
  10. DIGOXIN [Concomitant]
     Active Substance: DIGOXIN
  11. MULTI FOR HER [Concomitant]
  12. INVOKANA [Concomitant]
     Active Substance: CANAGLIFLOZIN
  13. FIBER COMPLETE [Concomitant]
  14. WARFARIN SODIUM [Concomitant]
     Active Substance: WARFARIN SODIUM
  15. GLIPIZIDE [Concomitant]
     Active Substance: GLIPIZIDE
  16. CALCIUM CITRATE\CHOLECALCIFEROL [Concomitant]
     Active Substance: CALCIUM CITRATE\CHOLECALCIFEROL
  17. METOPROLOL SUCCINATE [Concomitant]
     Active Substance: METOPROLOL SUCCINATE

REACTIONS (1)
  - Heart rate increased [None]
